FAERS Safety Report 9386800 (Version 1)
Quarter: 2013Q3

REPORT INFORMATION
  Report Type: Spontaneous
  Country: NO (occurrence: NO)
  Receive Date: 20130708
  Receipt Date: 20130708
  Transmission Date: 20140515
  Serious: Yes (Hospitalization)
  Sender: FDA-Public Use
  Company Number: NO-009507513-1307NOR002089

PATIENT
  Age: 85 Year
  Sex: Female

DRUGS (4)
  1. FOSAMAX [Suspect]
     Indication: OSTEOPOROSIS
     Dosage: 70 MG, QW
     Route: 048
     Dates: end: 20130626
  2. CALCIGRAN FORTE [Concomitant]
     Route: 048
  3. IMOVANE [Concomitant]
     Dosage: 5 MG, QD
     Route: 048
  4. PARACET [Concomitant]
     Dosage: 1-2 TABLETS AS NECCESSARY
     Route: 048

REACTIONS (1)
  - Stress fracture [Recovering/Resolving]
